FAERS Safety Report 17410549 (Version 7)
Quarter: 2020Q2

REPORT INFORMATION
  Report Type: Spontaneous
  Country: US (occurrence: US)
  Receive Date: 20200212
  Receipt Date: 20200527
  Transmission Date: 20200713
  Serious: Yes (Death, Hospitalization)
  Sender: FDA-Public Use
  Company Number: US-ACTELION-A-US2020-201642

PATIENT
  Age: 35 Year
  Sex: Female
  Weight: 52.15 kg

DRUGS (16)
  1. VELETRI [Suspect]
     Active Substance: EPOPROSTENOL
     Indication: PULMONARY ARTERIAL HYPERTENSION
     Dosage: 26 NG/KG, PER MIN
     Route: 042
  2. PEPCID [Concomitant]
     Active Substance: FAMOTIDINE
     Dosage: UNK
  3. MAGNESIUM [Concomitant]
     Active Substance: MAGNESIUM
  4. SILDENAFIL. [Concomitant]
     Active Substance: SILDENAFIL
     Dosage: UNK
  5. REMODULIN [Concomitant]
     Active Substance: TREPROSTINIL
  6. GARLIC. [Concomitant]
     Active Substance: GARLIC
  7. PRENATAL VITAMINS [Concomitant]
     Active Substance: VITAMINS
  8. VELETRI [Suspect]
     Active Substance: EPOPROSTENOL
     Dosage: 21 NG/KG, PER MIN
     Route: 042
  9. VELETRI [Suspect]
     Active Substance: EPOPROSTENOL
     Dosage: UNK
     Route: 042
  10. UPTRAVI [Suspect]
     Active Substance: SELEXIPAG
     Indication: PULMONARY ARTERIAL HYPERTENSION
     Dosage: UNK
     Route: 048
  11. VELETRI [Suspect]
     Active Substance: EPOPROSTENOL
     Dosage: 18 NG/KG, PER MIN
     Route: 042
  12. COENZYME [Concomitant]
     Active Substance: UBIDECARENONE
  13. VELETRI [Suspect]
     Active Substance: EPOPROSTENOL
     Dosage: 28 NG/KG, PER MIN
     Route: 042
  14. SILDENAFIL CITRATE. [Concomitant]
     Active Substance: SILDENAFIL CITRATE
     Dosage: UNK
  15. LASIX [Concomitant]
     Active Substance: FUROSEMIDE
     Dosage: UNK
  16. BILBERRY [Concomitant]
     Active Substance: BILBERRY

REACTIONS (21)
  - Respiratory distress [Unknown]
  - Exposure during pregnancy [Unknown]
  - Oxygen saturation decreased [Not Recovered/Not Resolved]
  - Lung disorder [Unknown]
  - Epistaxis [Unknown]
  - Premature delivery [Unknown]
  - Tachycardia [Not Recovered/Not Resolved]
  - Caesarean section [Unknown]
  - Palpitations [Recovered/Resolved]
  - Chest discomfort [Not Recovered/Not Resolved]
  - Pulmonary hypertension [Fatal]
  - Premature labour [Unknown]
  - Transplant evaluation [Unknown]
  - Complication of pregnancy [Fatal]
  - Cardiac disorder [Fatal]
  - Condition aggravated [Not Recovered/Not Resolved]
  - Diarrhoea [Unknown]
  - Application site irritation [Unknown]
  - Pain in jaw [Unknown]
  - Cough [Recovered/Resolved]
  - Dyspnoea [Not Recovered/Not Resolved]

NARRATIVE: CASE EVENT DATE: 20200131
